FAERS Safety Report 9055637 (Version 1)
Quarter: 2013Q1

REPORT INFORMATION
  Report Type: Spontaneous
  Country: US (occurrence: US)
  Receive Date: 20130206
  Receipt Date: 20130206
  Transmission Date: 20140127
  Serious: Yes (Death, Other)
  Sender: FDA-Public Use
  Company Number: US-PFIZER INC-2013043716

PATIENT
  Age: 70 Year
  Sex: Female

DRUGS (12)
  1. AROMASIN [Suspect]
     Indication: BREAST CANCER METASTATIC
     Dosage: 25 MG, 1X/DAY
     Dates: start: 201205
  2. LAPATINIB [Suspect]
     Indication: BREAST CANCER METASTATIC
     Dosage: 1250 MG, 1X/DAY
     Route: 048
     Dates: start: 20090819
  3. TRAMADOL HYDROCHLORIDE [Concomitant]
     Dosage: UNK
  4. LISINOPRIL [Concomitant]
     Dosage: UNK
  5. MILK OF MAGNESIA [Concomitant]
     Dosage: UNK
  6. NAMENDA [Concomitant]
     Dosage: UNK
  7. OMEPRAZOLE [Concomitant]
     Dosage: UNK
  8. TOPROL XL [Concomitant]
     Dosage: UNK
  9. POTASSIUM CHLORIDE [Concomitant]
     Dosage: UNK
  10. EXELON [Concomitant]
     Dosage: UNK
  11. OSCAL [Concomitant]
     Dosage: UNK
  12. TYLENOL ARTHRITIS [Concomitant]
     Dosage: UNK

REACTIONS (4)
  - Death [Fatal]
  - Abasia [Unknown]
  - Dysphagia [Unknown]
  - Impaired healing [Unknown]
